FAERS Safety Report 8319916-9 (Version None)
Quarter: 2012Q2

REPORT INFORMATION
  Report Type: 
  Country: None (occurrence: None)
  Receive Date: 20120427
  Receipt Date: 20120416
  Transmission Date: 20120825
  Serious: Yes (Other)
  Sender: FDA-Public Use
  Company Number: CHPA2012US009437

PATIENT
  Sex: Female

DRUGS (2)
  1. EXCEDRIN EXTRA STRENGTH TABLETS [Suspect]
     Dosage: UNK, UNK
     Route: 048
  2. DRUG THERAPY NOS [Concomitant]

REACTIONS (2)
  - NEOPLASM [None]
  - WRONG TECHNIQUE IN DRUG USAGE PROCESS [None]
